FAERS Safety Report 9636434 (Version 2)
Quarter: 2013Q4

REPORT INFORMATION
  Report Type: Spontaneous
  Country: US (occurrence: US)
  Receive Date: 20131021
  Receipt Date: 20131021
  Transmission Date: 20140711
  Serious: No
  Sender: FDA-Public Use
  Company Number: US-PFIZER INC-2013020738

PATIENT
  Age: 52 Year
  Sex: Female
  Weight: 77.1 kg

DRUGS (3)
  1. CHANTIX [Suspect]
     Indication: SMOKING CESSATION THERAPY
     Dosage: UNK
  2. CHANTIX [Suspect]
     Dosage: UNK, 2X/DAY
  3. CHANTIX [Suspect]
     Dosage: UNK, 1X/DAY

REACTIONS (6)
  - Mental disorder [Unknown]
  - Hostility [Unknown]
  - Nausea [Unknown]
  - Abnormal dreams [Unknown]
  - Drug ineffective [Unknown]
  - Tobacco user [Unknown]
